FAERS Safety Report 6143529-0 (Version None)
Quarter: 2009Q2

REPORT INFORMATION
  Report Type: 
  Country: None (occurrence: None)
  Receive Date: 20090403
  Receipt Date: 20090324
  Transmission Date: 20091009
  Serious: Yes (Death, Hospitalization)
  Sender: FDA-Public Use
  Company Number: IN-BAXTER-2009BH004017

PATIENT
  Age: 55 Year
  Sex: Male
  Weight: 76 kg

DRUGS (10)
  1. DIANEAL [Suspect]
     Indication: RENAL FAILURE CHRONIC
     Route: 033
     Dates: start: 20090203, end: 20090310
  2. DIANEAL [Suspect]
     Route: 033
     Dates: start: 20090203, end: 20090310
  3. DIANEAL [Suspect]
     Route: 033
     Dates: start: 20061215, end: 20090203
  4. LIVOGEN [Concomitant]
     Indication: DRUG USE FOR UNKNOWN INDICATION
     Route: 065
     Dates: start: 20070205, end: 20090310
  5. CALCIT [Concomitant]
     Indication: DRUG USE FOR UNKNOWN INDICATION
     Route: 065
     Dates: start: 20070205, end: 20090310
  6. PHOSTAT [Concomitant]
     Indication: DRUG USE FOR UNKNOWN INDICATION
     Route: 065
     Dates: start: 20070205, end: 20090310
  7. IMDUR [Concomitant]
     Indication: DRUG USE FOR UNKNOWN INDICATION
     Route: 065
     Dates: start: 20070205, end: 20090310
  8. FOLVITE [Concomitant]
     Indication: DRUG USE FOR UNKNOWN INDICATION
     Route: 065
     Dates: start: 20070205, end: 20090310
  9. ECOSPRIN AV [Concomitant]
     Indication: DRUG USE FOR UNKNOWN INDICATION
     Route: 065
     Dates: start: 20070205, end: 20090310
  10. INSULIN MIXTARD HUMAN [Concomitant]
     Indication: DRUG USE FOR UNKNOWN INDICATION
     Route: 065
     Dates: start: 20070205, end: 20090310

REACTIONS (2)
  - CARDIO-RESPIRATORY ARREST [None]
  - HYPOTENSION [None]
